FAERS Safety Report 8822224 (Version 1)
Quarter: 2012Q4

REPORT INFORMATION
  Report Type: 
  Country: US (occurrence: US)
  Receive Date: 20121003
  Receipt Date: 20121003
  Transmission Date: 20130627
  Serious: No
  Sender: FDA-Public Use
  Company Number: US-PFIZER INC-2012239562

PATIENT
  Age: 57 Year
  Sex: Female

DRUGS (16)
  1. XANAX [Suspect]
     Indication: ANXIETY
     Dosage: 0.25 mg, 1x/day (daily as needed)
     Route: 048
     Dates: start: 20110623
  2. XANAX [Suspect]
     Indication: PANIC DISORDER WITHOUT AGORAPHOBIA
  3. LIPITOR [Suspect]
     Dosage: 40 mg, 1x/day
     Route: 048
     Dates: start: 20110704
  4. LEVOXYL [Suspect]
     Dosage: 75 ug, 1x/day
     Route: 048
     Dates: start: 20120316
  5. LORATADINE [Concomitant]
     Dosage: 10 mg, 1x/day
     Route: 048
     Dates: start: 20120227
  6. NEXIUM [Concomitant]
     Dosage: 40 mg, 1x/day
     Route: 048
     Dates: start: 20120227
  7. FLAX SEED OIL [Concomitant]
     Dosage: 1000 mg, 1x/day (daily)
     Route: 048
  8. CITALOPRAM [Concomitant]
     Indication: ANXIETY
     Dosage: 40 mg, at bedtime
     Dates: start: 20100428
  9. CALTRATE 600 +D PLUS [Concomitant]
     Dosage: 2 DF, 1x/day
     Route: 048
     Dates: start: 20110815
  10. ASA [Concomitant]
     Dosage: 81 mg, 1x/day
     Route: 048
     Dates: start: 20090318
  11. ALBUTEROL SULFATE [Concomitant]
     Dosage: 1 inhalation every 4 hours as needed
     Dates: start: 20110602
  12. KLOR-CON [Concomitant]
     Dosage: 10 mEq, 2x/day
     Route: 048
     Dates: start: 20120416
  13. FLOVENT HFA [Concomitant]
     Dosage: 2 puffs twice daily
     Dates: start: 20110711
  14. SINGULAIR [Concomitant]
     Dosage: 10 mg, 1x/day
     Route: 048
     Dates: start: 20110602
  15. VENTOLIN HFA [Concomitant]
     Dosage: 2 puffs every 4 hours as needed
     Dates: start: 20110711
  16. ATACAND HCT [Concomitant]
     Dosage: 16/12.5 mg, 1 tablet daily
     Route: 048
     Dates: start: 20110704

REACTIONS (1)
  - Pain in extremity [Unknown]
